FAERS Safety Report 22964593 (Version 3)
Quarter: 2023Q4

REPORT INFORMATION
  Report Type: Spontaneous
  Country: JP (occurrence: JP)
  Receive Date: 20230921
  Receipt Date: 20231024
  Transmission Date: 20240110
  Serious: No
  Sender: FDA-Public Use
  Company Number: JP-GSKNCCC-Case-01809394_AE-75129

PATIENT

DRUGS (7)
  1. SOTROVIMAB [Suspect]
     Active Substance: SOTROVIMAB
     Indication: Coronavirus infection
     Dosage: 500 MG/100 ML/30 MINUTES, 1D
     Route: 041
     Dates: start: 20230812, end: 20230812
  2. SOTROVIMAB [Suspect]
     Active Substance: SOTROVIMAB
     Indication: COVID-19
  3. VONOPRAZAN FUMARATE [Concomitant]
     Active Substance: VONOPRAZAN FUMARATE
     Dosage: 10 MG, DOSE NUMBER: 1
     Route: 048
     Dates: start: 20230812, end: 20230812
  4. LEVOTHYROXINE SODIUM [Concomitant]
     Active Substance: LEVOTHYROXINE SODIUM
     Dosage: 50 UG,  DOSE NUMBER: 1
     Route: 048
     Dates: start: 20230812, end: 20230812
  5. ROSUVASTATIN CALCIUM [Concomitant]
     Active Substance: ROSUVASTATIN CALCIUM
     Dosage: 25 MG,  DOSE NUMBER: 2
     Route: 048
     Dates: start: 20230812, end: 20230812
  6. GLUCONSAN K FINE GRANULES [Concomitant]
     Dosage: 2.7 G, AFTER EACH MEAL
     Route: 048
     Dates: start: 20230812, end: 20230812
  7. ASPIRIN [Concomitant]
     Active Substance: ASPIRIN
     Dosage: 100 MG,  DOSE NUMBER: 1
     Route: 048
     Dates: start: 20230812, end: 20230812

REACTIONS (4)
  - Rash [Recovering/Resolving]
  - Rash erythematous [Recovering/Resolving]
  - Pruritus [Recovering/Resolving]
  - Drug eruption [Recovering/Resolving]

NARRATIVE: CASE EVENT DATE: 20230812
